FAERS Safety Report 24763651 (Version 1)
Quarter: 2024Q4

REPORT INFORMATION
  Report Type: Spontaneous
  Country: IN (occurrence: None)
  Receive Date: 20241223
  Receipt Date: 20241223
  Transmission Date: 20250114
  Serious: Yes (Hospitalization, Other)
  Sender: MAIA PHARMACEUTICALS
  Company Number: IN-MAIA Pharmaceuticals, Inc.-MAI202412-000108

PATIENT
  Age: 39 Year
  Sex: Male

DRUGS (4)
  1. BACLOFEN [Suspect]
     Active Substance: BACLOFEN
     Indication: Alcoholism
     Dosage: 20 MG/30 MG
     Route: 048
  2. BACLOFEN [Suspect]
     Active Substance: BACLOFEN
     Dosage: UP TO 150 MG
     Route: 048
  3. BACLOFEN [Suspect]
     Active Substance: BACLOFEN
     Dosage: 200 MG OVER 12 H
     Route: 048
  4. BACLOFEN [Suspect]
     Active Substance: BACLOFEN
     Dosage: 40 MG
     Route: 048
     Dates: start: 20241017

REACTIONS (10)
  - Drug abuse [Unknown]
  - Poisoning [Recovered/Resolved]
  - Bradycardia [Recovered/Resolved]
  - Hypotension [Recovered/Resolved]
  - Loss of consciousness [Recovered/Resolved]
  - Respiratory depression [Recovered/Resolved]
  - Upper gastrointestinal haemorrhage [Recovered/Resolved]
  - Amnesia [Recovered/Resolved]
  - Intentional overdose [Unknown]
  - Product use in unapproved indication [Unknown]

NARRATIVE: CASE EVENT DATE: 20221018
